FAERS Safety Report 9851259 (Version 1)
Quarter: 2014Q1

REPORT INFORMATION
  Report Type: Spontaneous
  Country: GR (occurrence: GR)
  Receive Date: 20140128
  Receipt Date: 20140128
  Transmission Date: 20141002
  Serious: Yes (Death)
  Sender: FDA-Public Use
  Company Number: GR-MERCK-1401GRC010213

PATIENT
  Sex: 0

DRUGS (1)
  1. RALTEGRAVIR POTASSIUM [Suspect]
     Indication: HIV INFECTION
     Dosage: DURATION: MORE THAN 3 MONTHS
     Route: 048

REACTIONS (1)
  - Death [Fatal]
